FAERS Safety Report 6608359-1 (Version None)
Quarter: 2010Q1

REPORT INFORMATION
  Report Type: 
  Country: None (occurrence: None)
  Receive Date: 20100212
  Receipt Date: 20091214
  Transmission Date: 20100710
  Serious: No
  Sender: FDA-Public Use
  Company Number: 1000010782

PATIENT
  Age: 59 Year
  Sex: Female

DRUGS (5)
  1. SAVELLA [Suspect]
     Indication: FIBROMYALGIA
     Dosage: 12.5 MG (12.5 MG, 1 IN 1 D), ORAL
     Route: 048
     Dates: start: 20091209
  2. COREG [Concomitant]
  3. NORVASC [Concomitant]
  4. MICARDIS [Concomitant]
  5. FENTANYL [Concomitant]

REACTIONS (1)
  - BLOOD PRESSURE INCREASED [None]
